FAERS Safety Report 5278293-0 (Version None)
Quarter: 2007Q1

REPORT INFORMATION
  Report Type: 
  Country: None (occurrence: None)
  Receive Date: 20070322
  Receipt Date: 20070312
  Transmission Date: 20070707
  Serious: Yes (Hospitalization)
  Sender: FDA-Public Use
  Company Number: E2090-00199-SPO-JP

PATIENT
  Age: 70 Year
  Sex: Female

DRUGS (16)
  1. EXCEGRAN (ZONISAMIDE) [Suspect]
     Indication: CONVULSION PROPHYLAXIS
     Dosage: 200 MG, 1 IN 1 D, ORAL
     Route: 048
     Dates: start: 20061109, end: 20070222
  2. CARBENIN (GALENIC/PANIPENEM/BETAMIPRON/) [Suspect]
     Indication: BACTERIAL INFECTION
     Dosage: 2 GM, INTRAVENOUS (NOT OTHERWISE SPECIFIED)
     Dates: start: 20070211, end: 20070222
  3. PRODIF (FOSFLUCONAZOLE) [Suspect]
     Indication: FUNGAL INFECTION
     Dosage: 200 MG
     Dates: start: 20070213, end: 20070214
  4. NIZATIDINE [Concomitant]
  5. DECADRON [Concomitant]
  6. PIPERACILLIN SODIUM [Concomitant]
  7. HEAVY MAGNESIUM OXIDE (MAGNESIUM OXIDE HEAVY) [Concomitant]
  8. ZANTAC [Concomitant]
  9. BACTRIM [Concomitant]
  10. SOLU-MEDROL [Concomitant]
  11. REMINARON (GABEXATE MESILATE) [Concomitant]
  12. BACTRAMIN (BACTRIM) [Concomitant]
  13. AMBISOME [Concomitant]
  14. PHENYTOIN [Concomitant]
  15. RANIMUSTINE (RANIMUSINE) [Concomitant]
  16. VINCRISTINE [Concomitant]

REACTIONS (14)
  - ANAEMIA [None]
  - CONDITION AGGRAVATED [None]
  - CONVULSION [None]
  - DISSEMINATED INTRAVASCULAR COAGULATION [None]
  - FIBRIN DEGRADATION PRODUCTS INCREASED [None]
  - FUNGAL INFECTION [None]
  - HYPOTENSION [None]
  - HYPOXIA [None]
  - INTERSTITIAL LUNG DISEASE [None]
  - PLATELET COUNT DECREASED [None]
  - PNEUMOCYSTIS JIROVECI INFECTION [None]
  - PNEUMONIA ASPIRATION [None]
  - PYREXIA [None]
  - THROMBOCYTOPENIA [None]
